FAERS Safety Report 11052365 (Version 1)
Quarter: 2015Q2

REPORT INFORMATION
  Report Type: Spontaneous
  Country: US (occurrence: US)
  Receive Date: 20150421
  Receipt Date: 20150421
  Transmission Date: 20150821
  Serious: Yes (Disabling)
  Sender: FDA-Public Use
  Company Number: US-ASTELLAS-2015US012960

PATIENT
  Age: 63 Year
  Sex: Female

DRUGS (1)
  1. TARCEVA [Suspect]
     Active Substance: ERLOTINIB HYDROCHLORIDE
     Indication: LUNG NEOPLASM MALIGNANT
     Dosage: UNK, UNKNOWN FREQ.
     Route: 065
     Dates: start: 201306

REACTIONS (5)
  - Onychoclasis [Unknown]
  - Dry mouth [Unknown]
  - Dry skin [Unknown]
  - Hair disorder [Unknown]
  - Pain of skin [Unknown]
